FAERS Safety Report 5871920-6 (Version None)
Quarter: 2008Q3

REPORT INFORMATION
  Report Type: 
  Country: None (occurrence: None)
  Receive Date: 20080905
  Receipt Date: 20080814
  Transmission Date: 20090109
  Serious: No
  Sender: FDA-Public Use
  Company Number: US-BAYER-200830326NA

PATIENT
  Age: 31 Year
  Sex: Female
  Weight: 52 kg

DRUGS (3)
  1. YAZ [Suspect]
     Indication: CONTRACEPTION
     Route: 048
     Dates: start: 20080401, end: 20080718
  2. SYNTHROID [Concomitant]
  3. CYTOMEL [Concomitant]

REACTIONS (3)
  - ACNE [None]
  - MIGRAINE [None]
  - WITHDRAWAL BLEEDING IRREGULAR [None]
